FAERS Safety Report 24856181 (Version 1)
Quarter: 2025Q1

REPORT INFORMATION
  Report Type: Spontaneous
  Country: US (occurrence: US)
  Receive Date: 20250117
  Receipt Date: 20250117
  Transmission Date: 20250408
  Serious: Yes (Other)
  Sender: MERCK
  Company Number: US-009507513-2501USA003197

PATIENT
  Age: 70 Year
  Sex: Female

DRUGS (2)
  1. WELIREG [Suspect]
     Active Substance: BELZUTIFAN
     Indication: Renal cancer
     Route: 048
  2. CABOZANTINIB [Suspect]
     Active Substance: CABOZANTINIB
     Indication: Renal cancer
     Route: 065
     Dates: end: 20241115

REACTIONS (8)
  - Bone disorder [Unknown]
  - Bone lesion [Not Recovered/Not Resolved]
  - Bone pain [Not Recovered/Not Resolved]
  - Myalgia [Unknown]
  - Arthralgia [Unknown]
  - Skin ulcer [Unknown]
  - Haemoglobin decreased [Unknown]
  - Impaired healing [Not Recovered/Not Resolved]
